FAERS Safety Report 14857837 (Version 1)
Quarter: 2018Q2

REPORT INFORMATION
  Report Type: Spontaneous
  Country: FR (occurrence: FR)
  Receive Date: 20180508
  Receipt Date: 20180508
  Transmission Date: 20180711
  Serious: Yes (Other)
  Sender: FDA-Public Use
  Company Number: FR-MERCK KGAA-2047339

PATIENT
  Age: 50 Year
  Sex: Female

DRUGS (1)
  1. NOVOTHYROX [Suspect]
     Active Substance: LEVOTHYROXINE SODIUM
     Indication: THYROID DISORDER

REACTIONS (28)
  - Exophthalmos [None]
  - Disturbance in attention [None]
  - Hyperacusis [None]
  - Decreased interest [None]
  - Personal relationship issue [None]
  - Hot flush [None]
  - Migraine [None]
  - Eye irritation [None]
  - Constipation [None]
  - Social avoidant behaviour [None]
  - Muscle spasms [None]
  - Irritability [None]
  - Paraesthesia [None]
  - Tinnitus [None]
  - Ocular hyperaemia [None]
  - Blood cholesterol increased [None]
  - Dizziness [None]
  - Fatigue [None]
  - Amnesia [None]
  - Impaired work ability [None]
  - Malaise [None]
  - Psychiatric symptom [None]
  - Blood potassium increased [None]
  - Sleep disorder [None]
  - Weight increased [None]
  - Insomnia [None]
  - Pain [None]
  - Blood triglycerides increased [Recovered/Resolved]

NARRATIVE: CASE EVENT DATE: 2017
